FAERS Safety Report 17456727 (Version 1)
Quarter: 2020Q1

REPORT INFORMATION
  Report Type: Spontaneous
  Country: US (occurrence: US)
  Receive Date: 20200225
  Receipt Date: 20200225
  Transmission Date: 20200409
  Serious: Yes (Death, Hospitalization)
  Sender: FDA-Public Use
  Company Number: US-MYLANLABS-2020M1018804

PATIENT
  Age: 49 Year
  Sex: Female

DRUGS (13)
  1. SODIUM BICARBONATE. [Suspect]
     Active Substance: SODIUM BICARBONATE
     Indication: TOXICITY TO VARIOUS AGENTS
     Dosage: THREE AMPOULES
     Route: 065
  2. TRAMADOL. [Concomitant]
     Active Substance: TRAMADOL
     Route: 065
  3. NOREPINEPHRINE. [Suspect]
     Active Substance: NOREPINEPHRINE
     Indication: TOXICITY TO VARIOUS AGENTS
     Route: 065
  4. LORAZEPAM. [Concomitant]
     Active Substance: LORAZEPAM
     Route: 065
  5. FENTANYL. [Concomitant]
     Active Substance: FENTANYL
     Route: 065
  6. PROPOFOL. [Concomitant]
     Active Substance: PROPOFOL
     Route: 065
  7. OXYCODONE [Concomitant]
     Active Substance: OXYCODONE
     Route: 065
  8. ACETYLCYSTEINE. [Suspect]
     Active Substance: ACETYLCYSTEINE
     Indication: TOXICITY TO VARIOUS AGENTS
     Dosage: THREE AMPOULES
     Route: 065
  9. VASOPRESSIN. [Suspect]
     Active Substance: VASOPRESSIN
     Indication: TOXICITY TO VARIOUS AGENTS
     Route: 065
  10. DEXTROSE. [Suspect]
     Active Substance: DEXTROSE
     Indication: TOXICITY TO VARIOUS AGENTS
     Route: 065
  11. ACETAMINOPHEN. [Suspect]
     Active Substance: ACETAMINOPHEN
     Indication: PAIN
     Dosage: 2-3 TABLETS EVERY 4 - 6 H
     Route: 048
  12. SIMVASTATIN. [Concomitant]
     Active Substance: SIMVASTATIN
     Route: 065
  13. FOMEPIZOLE. [Concomitant]
     Active Substance: FOMEPIZOLE
     Indication: TOXICITY TO VARIOUS AGENTS
     Route: 065

REACTIONS (1)
  - Drug ineffective [Fatal]
